FAERS Safety Report 7739573-X (Version None)
Quarter: 2011Q3

REPORT INFORMATION
  Report Type: 
  Country: None (occurrence: None)
  Receive Date: 20110909
  Receipt Date: 20110825
  Transmission Date: 20111222
  Serious: Yes (Congenital Anomaly)
  Sender: FDA-Public Use
  Company Number: DE-ARROW GEN-2011-13574

PATIENT
  Weight: 0.35 kg

DRUGS (2)
  1. FOLIC ACID [Concomitant]
     Indication: DEPRESSION
     Dosage: UNK
     Route: 064
  2. CITALOPRAM HYDROBROMIDE [Suspect]
     Indication: DEPRESSION
     Dosage: 30 MG/D IN GW 0-5; SINCE GW 6 20 MG/D
     Route: 064
     Dates: start: 20100101, end: 20100821

REACTIONS (5)
  - SPINA BIFIDA [None]
  - FOETAL MALFORMATION [None]
  - MATERNAL DRUGS AFFECTING FOETUS [None]
  - CONGENITAL HYDROCEPHALUS [None]
  - ABORTION INDUCED [None]
